FAERS Safety Report 4988065-X (Version None)
Quarter: 2006Q2

REPORT INFORMATION
  Report Type: 
  Country: None (occurrence: None)
  Receive Date: 20060425
  Receipt Date: 20060412
  Transmission Date: 20061013
  Serious: Yes (Hospitalization, Other)
  Sender: FDA-Public Use
  Company Number: 2006050376

PATIENT
  Age: 58 Year
  Sex: Male

DRUGS (5)
  1. FLUCONAZOLE [Suspect]
     Indication: CANDIDIASIS
     Dosage: INTRAVENOUS
     Route: 042
     Dates: start: 20060403, end: 20060406
  2. VFEND [Suspect]
     Indication: CANDIDIASIS
     Dosage: 720 MG (360 MG, 2 IN 1 D), INTRAVENOUS
     Route: 042
     Dates: start: 20060401, end: 20060401
  3. AMIKIN [Suspect]
     Indication: SEPSIS
  4. HYDROCORTISONE [Concomitant]
  5. HEPARIN [Concomitant]

REACTIONS (2)
  - RENAL FAILURE ACUTE [None]
  - THERAPY NON-RESPONDER [None]
